FAERS Safety Report 20226523 (Version 1)
Quarter: 2021Q4

REPORT INFORMATION
  Report Type: Spontaneous
  Country: UA (occurrence: UA)
  Receive Date: 20211224
  Receipt Date: 20211224
  Transmission Date: 20220303
  Serious: Yes (Other)
  Sender: FDA-Public Use
  Company Number: UA-BAYER-2021A272579

PATIENT
  Sex: Male

DRUGS (1)
  1. RIVAROXABAN [Suspect]
     Active Substance: RIVAROXABAN
     Indication: Product used for unknown indication
     Dosage: UNK
     Route: 065
     Dates: start: 2018

REACTIONS (1)
  - Activated partial thromboplastin time prolonged [Unknown]
